FAERS Safety Report 7473033-9 (Version None)
Quarter: 2011Q2

REPORT INFORMATION
  Report Type: 
  Country: None (occurrence: None)
  Receive Date: 20110511
  Receipt Date: 20110504
  Transmission Date: 20111010
  Serious: Yes (Hospitalization)
  Sender: FDA-Public Use
  Company Number: CN-GENENTECH-318174

PATIENT
  Age: 69 Year
  Sex: Male
  Weight: 50 kg

DRUGS (1)
  1. RITUXAN [Suspect]
     Indication: MANTLE CELL LYMPHOMA
     Dosage: UNK
     Route: 041
     Dates: start: 20110328, end: 20110328

REACTIONS (3)
  - NEOPLASM PROGRESSION [None]
  - RENAL FAILURE [None]
  - ASTHENIA [None]
